FAERS Safety Report 14903302 (Version 1)
Quarter: 2018Q2

REPORT INFORMATION
  Report Type: Spontaneous
  Country: US (occurrence: US)
  Receive Date: 20180516
  Receipt Date: 20180516
  Transmission Date: 20180711
  Serious: Yes (Hospitalization, Other)
  Sender: FDA-Public Use
  Company Number: US-MYLANLABS-2018M1032469

PATIENT
  Age: 27 Year
  Sex: Female

DRUGS (2)
  1. RIFAMPIN FOR INJECTION USP [Suspect]
     Active Substance: RIFAMPIN
     Indication: HIDRADENITIS
     Route: 065
  2. MINOCYCLINE [Suspect]
     Active Substance: MINOCYCLINE\MINOCYCLINE HYDROCHLORIDE
     Indication: HIDRADENITIS
     Route: 065

REACTIONS (3)
  - Splenic infarction [Unknown]
  - Splenic thrombosis [Unknown]
  - Drug reaction with eosinophilia and systemic symptoms [Recovering/Resolving]
